FAERS Safety Report 23748956 (Version 1)
Quarter: 2024Q2

REPORT INFORMATION
  Report Type: Spontaneous
  Country: GB (occurrence: None)
  Receive Date: 20240416
  Receipt Date: 20240416
  Transmission Date: 20240715
  Serious: Yes (Other)
  Sender: FDA-Public Use
  Company Number: 2024A084026

PATIENT
  Age: 60 Year
  Sex: Male
  Weight: 94 kg

DRUGS (22)
  1. TICAGRELOR [Suspect]
     Active Substance: TICAGRELOR
     Dates: start: 20240129
  2. TACROLIMUS [Concomitant]
     Active Substance: TACROLIMUS
     Dosage: 1
     Dates: start: 20221103
  3. ASPIRIN [Concomitant]
     Active Substance: ASPIRIN
     Dosage: AT NIGHT
     Dates: start: 20221103
  4. ATORVASTATIN [Concomitant]
     Active Substance: ATORVASTATIN
     Dosage: 1 AT NIGHT
     Dates: start: 20221103
  5. CALCIUM CARBONATE [Concomitant]
     Active Substance: CALCIUM CARBONATE
     Dosage: 1 EVERY MORNING
     Dates: start: 20221103
  6. CARBOCYSTEINE [Concomitant]
     Active Substance: CARBOCYSTEINE
     Dosage: 10
     Dates: start: 20221103
  7. CLOPIDOGREL [Concomitant]
     Active Substance: CLOPIDOGREL BISULFATE
     Dosage: 1 UNTIL 29/12/2024)
     Dates: start: 20240403
  8. MORNINGSIDE HEALTHCARE FELODIPINE PROLONGED-RELEASE [Concomitant]
     Dosage: 1 AT NIGHT
     Dates: start: 20240108, end: 20240205
  9. DILTIAZEM [Concomitant]
     Active Substance: DILTIAZEM
     Dosage: 1
     Dates: start: 20240123
  10. FERROUS FUMARATE [Concomitant]
     Active Substance: FERROUS FUMARATE
     Dosage: 1
     Dates: start: 20221103
  11. BECLOMETHASONE\FORMOTEROL [Concomitant]
     Active Substance: BECLOMETHASONE\FORMOTEROL
     Dosage: 2
     Dates: start: 20231128
  12. NITROGLYCERIN [Concomitant]
     Active Substance: NITROGLYCERIN
     Dosage: ONE PUFF AS NEEDED
     Dates: start: 20240123
  13. LANSOPRAZOLE [Concomitant]
     Active Substance: LANSOPRAZOLE
     Dosage: 1 EVERY MORNING
     Dates: start: 20221103
  14. LISINOPRIL [Concomitant]
     Active Substance: LISINOPRIL
     Dosage: 2
     Dates: start: 20240108, end: 20240205
  15. LORATADINE [Concomitant]
     Active Substance: LORATADINE
     Dosage: 1 DAILY
     Dates: start: 20221103
  16. METOPROLOL TARTRATE [Concomitant]
     Active Substance: METOPROLOL TARTRATE
     Dosage: 12.5
     Dates: start: 20240123, end: 20240301
  17. ACETAMINOPHEN [Concomitant]
     Active Substance: ACETAMINOPHEN
     Dosage: TAKE ONE OR TWO TABLETS FOUR TIMES DAILY WHEN N...
     Dates: start: 20221103
  18. QUININE SULFATE [Concomitant]
     Active Substance: QUININE SULFATE
     Dosage: 1 AT NIGHT
     Dates: start: 20221103
  19. BUDESONIDE\FORMOTEROL\GLYCOPYRRONIUM [Concomitant]
     Active Substance: BUDESONIDE\FORMOTEROL\GLYCOPYRRONIUM
     Dosage: 2
     Route: 055
     Dates: start: 20231002
  20. VENTOLIN [Concomitant]
     Active Substance: ALBUTEROL SULFATE
     Dosage: 2
     Dates: start: 20231211
  21. VIAGRA [Concomitant]
     Active Substance: SILDENAFIL CITRATE
     Dosage: USE AS DIRECTED
     Dates: start: 20230710
  22. CARBOMER [Concomitant]
     Active Substance: CARBOMER
     Dosage: 1
     Dates: start: 20221103

REACTIONS (3)
  - Depressed mood [Unknown]
  - Lethargy [Unknown]
  - Dyspnoea [Recovered/Resolved]

NARRATIVE: CASE EVENT DATE: 20240403
